FAERS Safety Report 14383768 (Version 1)
Quarter: 2018Q1

REPORT INFORMATION
  Report Type: Spontaneous
  Country: US (occurrence: US)
  Receive Date: 20180115
  Receipt Date: 20180115
  Transmission Date: 20180509
  Serious: No
  Sender: FDA-Public Use
  Company Number: US-009507513-1712USA010087

PATIENT
  Sex: Female

DRUGS (2)
  1. DIPROLENE AF [Suspect]
     Active Substance: BETAMETHASONE DIPROPIONATE
     Indication: RASH ERYTHEMATOUS
     Dosage: UNK UNK, BID
  2. MUPIROCIN. [Suspect]
     Active Substance: MUPIROCIN
     Indication: RASH ERYTHEMATOUS
     Dosage: UNK UNK, BID

REACTIONS (1)
  - Breast discolouration [Unknown]
